FAERS Safety Report 15904459 (Version 1)
Quarter: 2019Q1

REPORT INFORMATION
  Report Type: Spontaneous
  Country: DE (occurrence: DE)
  Receive Date: 20190204
  Receipt Date: 20190204
  Transmission Date: 20190417
  Serious: Yes (Hospitalization)
  Sender: FDA-Public Use
  Company Number: DE-ACCORD-105307

PATIENT
  Age: 67 Year
  Sex: Male
  Weight: 60 kg

DRUGS (11)
  1. BISOPROLOL FUMARATE/HYDROCHLOROTHIAZIDE [Concomitant]
     Dosage: 5 / 12.5 MG, 0.5-0-0-0, TABLETS
     Route: 048
  2. ALLOPURINOL. [Concomitant]
     Active Substance: ALLOPURINOL
     Dosage: 300 MG, 1-0-0-0, TABLETTEN
     Route: 048
  3. SEVREDOL [Concomitant]
     Active Substance: MORPHINE
     Dosage: 10 MG, SCHEME, TABLET
     Route: 048
  4. NOVALGIN (METAMIZOLE SODIUM) [Concomitant]
     Active Substance: METAMIZOLE SODIUM
     Dosage: 500 MG, BEDARF, TABLETTEN
     Route: 048
  5. LOPERAMIDE [Concomitant]
     Active Substance: LOPERAMIDE
     Dosage: 2 MG, 2-0-2-0, CAPSULES
     Route: 048
  6. FLUOROURACIL. [Suspect]
     Active Substance: FLUOROURACIL
     Indication: PRODUCT USED FOR UNKNOWN INDICATION
     Dosage: 1790 MG / DAY, SCHEME, SOLUTION FOR INJECTION / INFUSION
     Route: 042
  7. PANTOZOL [Concomitant]
     Active Substance: PANTOPRAZOLE SODIUM
     Dosage: 40 MG, 1-0-0-0, TABLET
     Route: 048
  8. MITOMYCIN C [Suspect]
     Active Substance: MITOMYCIN
     Indication: PRODUCT USED FOR UNKNOWN INDICATION
     Dosage: 17.9 MG / DAY, SCHEME, SOLUTION FOR INJECTION / INFUSION
     Route: 042
  9. METFORMIN [Concomitant]
     Active Substance: METFORMIN HYDROCHLORIDE
     Dosage: 1000 MG, 1-0-1-0, TABLETS
     Route: 048
  10. SIMVASTATIN. [Concomitant]
     Active Substance: SIMVASTATIN
     Dosage: 20 MG, 0-0-0.5-0, TABLET
     Route: 048
  11. CANDECOR [Concomitant]
     Active Substance: CANDESARTAN CILEXETIL
     Dosage: 32 MG, 0.5-0-0-0, TABLETS
     Route: 048

REACTIONS (8)
  - Dysuria [Unknown]
  - Cough [Unknown]
  - Dyspnoea [Unknown]
  - Decreased appetite [Unknown]
  - Fatigue [Unknown]
  - General physical health deterioration [Unknown]
  - Night sweats [Unknown]
  - Hypertension [Unknown]
